FAERS Safety Report 20860714 (Version 1)
Quarter: 2022Q2

REPORT INFORMATION
  Report Type: Other
  Country: US (occurrence: None)
  Receive Date: 20220523
  Receipt Date: 20220523
  Transmission Date: 20220720
  Serious: Yes (Hospitalization, Other)
  Sender: FDA-Public Use
  Company Number: US-ROCHE-2828138

PATIENT
  Age: 60 Year
  Sex: Male
  Weight: 77.180 kg

DRUGS (3)
  1. OCREVUS [Suspect]
     Active Substance: OCRELIZUMAB
     Indication: Multiple sclerosis
     Dosage: DATE OF TREATMENT: 30/MAY/2019, 15/NOV/2019, 07/MAY/2020, 11/MAY/2020, 25/NOV/2020
     Route: 065
     Dates: start: 20190516
  2. OCREVUS [Suspect]
     Active Substance: OCRELIZUMAB
     Indication: Relapsing-remitting multiple sclerosis
     Dosage: (PRESCRIBED AS INFUSE 600 MG EVERY 24 WEEKS)
     Route: 042
     Dates: start: 2020
  3. OCREVUS [Suspect]
     Active Substance: OCRELIZUMAB
     Route: 065
     Dates: start: 20200507

REACTIONS (12)
  - Fall [Unknown]
  - Clavicle fracture [Not Recovered/Not Resolved]
  - Pelvic fracture [Not Recovered/Not Resolved]
  - Spinal fracture [Not Recovered/Not Resolved]
  - Pain [Not Recovered/Not Resolved]
  - Joint dislocation [Not Recovered/Not Resolved]
  - Infection [Unknown]
  - Muscular weakness [Not Recovered/Not Resolved]
  - Fracture [Not Recovered/Not Resolved]
  - Swelling [Not Recovered/Not Resolved]
  - Osteonecrosis [Not Recovered/Not Resolved]
  - Dysstasia [Not Recovered/Not Resolved]

NARRATIVE: CASE EVENT DATE: 20210401
